FAERS Safety Report 24433963 (Version 2)
Quarter: 2025Q3

REPORT INFORMATION
  Report Type: Report from Study
  Country: ZA (occurrence: ZA)
  Receive Date: 20241014
  Receipt Date: 20250802
  Transmission Date: 20251021
  Serious: Yes (Other)
  Sender: ALEXION PHARMACEUTICALS
  Company Number: ZA-AstraZeneca-CH-00719541A

PATIENT
  Age: 84 Year
  Sex: Male

DRUGS (8)
  1. BUDESONIDE\FORMOTEROL [Suspect]
     Active Substance: BUDESONIDE\FORMOTEROL
     Indication: Asthma
  2. DUTASTERIDE\TAMSULOSIN HYDROCHLORIDE [Concomitant]
     Active Substance: DUTASTERIDE\TAMSULOSIN HYDROCHLORIDE
     Indication: Prostatomegaly
  3. Serdep [Concomitant]
     Indication: Mental disorder
  4. TELMISARTAN [Concomitant]
     Active Substance: TELMISARTAN
     Indication: Hypertension
  5. CICLESONIDE [Concomitant]
     Active Substance: CICLESONIDE
  6. MACRODANTIN [Concomitant]
     Active Substance: NITROFURANTOIN
  7. FLUPENTIXOL [Concomitant]
     Active Substance: FLUPENTIXOL
  8. FLUPENTIXOL [Concomitant]
     Active Substance: FLUPENTIXOL

REACTIONS (3)
  - Influenza [Unknown]
  - Dementia [Unknown]
  - Drug hypersensitivity [Unknown]
